FAERS Safety Report 7574619-3 (Version None)
Quarter: 2011Q2

REPORT INFORMATION
  Report Type: 
  Country: None (occurrence: None)
  Receive Date: 20110627
  Receipt Date: 20110614
  Transmission Date: 20111010
  Serious: Yes (Hospitalization, Other)
  Sender: FDA-Public Use
  Company Number: IT-BAYER-2010-007806

PATIENT
  Age: 77 Year
  Sex: Female
  Weight: 62.5 kg

DRUGS (9)
  1. SORAFENIB (RAF KINASE INHIBITOR) [Suspect]
     Indication: THYROID CANCER
     Dosage: 400 MG, BID
     Route: 048
     Dates: start: 20101214, end: 20101220
  2. AMLODIPINE [Concomitant]
     Indication: HYPERTENSION
     Dosage: 10 MG, QD
     Route: 048
     Dates: start: 19700101
  3. METFORMIN HCL [Concomitant]
     Indication: TYPE 2 DIABETES MELLITUS
     Dosage: 1500 MG, QD
     Route: 048
     Dates: start: 20060101
  4. SORAFENIB (RAF KINASE INHIBITOR) [Suspect]
     Dosage: 200 MG, BID
     Route: 048
     Dates: start: 20110525
  5. LEVOTHYROXINE SODIUM [Concomitant]
     Dosage: 152 MG, QD
     Route: 048
     Dates: start: 20110122
  6. CODEINE [Concomitant]
     Indication: MUSCULOSKELETAL PAIN
     Dosage: 30 MG, PRN
     Route: 048
     Dates: start: 20090701
  7. SORAFENIB (RAF KINASE INHIBITOR) [Suspect]
     Dosage: 600 MG, BID
     Route: 048
     Dates: start: 20110103, end: 20110110
  8. CARVEDILOL [Concomitant]
     Indication: HYPERTENSION
     Dosage: 25 MG, QD
     Route: 048
     Dates: start: 19700101
  9. LEVOTHYROXINE SODIUM [Concomitant]
     Indication: HYPOTHYROIDISM
     Dosage: 112.5 MCG/24HR, QD
     Route: 048
     Dates: start: 20090109, end: 20110109

REACTIONS (2)
  - MUCOSAL INFLAMMATION [None]
  - HYPOCALCAEMIA [None]
